FAERS Safety Report 8712985 (Version 2)
Quarter: 2012Q4

REPORT INFORMATION
  Report Type: 
  Country: US (occurrence: None)
  Receive Date: 20120723
  Receipt Date: 20120823
  Transmission Date: 20130627
  Serious: Yes (Death, Life-Threatening, Other)
  Sender: FDA-Public Use
  Company Number: EUS-2012-00491

PATIENT
  Age: 5 Year
  Sex: Male

DRUGS (1)
  1. ASPARAGINASE [Suspect]
     Indication: ACUTE LYMPHOCYTIC LEUKAEMIA

REACTIONS (6)
  - PANCREATITIS [None]
  - MULTI-ORGAN FAILURE [None]
  - INTRA-ABDOMINAL HAEMORRHAGE [None]
  - POST PROCEDURAL COMPLICATION [None]
  - ULCER [None]
  - ANGIOPATHY [None]
